FAERS Safety Report 16637314 (Version 3)
Quarter: 2019Q3

REPORT INFORMATION
  Report Type: Spontaneous
  Country: CN (occurrence: CN)
  Receive Date: 20190726
  Receipt Date: 20190802
  Transmission Date: 20191004
  Serious: Yes (Death, Hospitalization, Other)
  Sender: FDA-Public Use
  Company Number: CN-ASTRAZENECA-2019SF06919

PATIENT
  Age: 19576 Day
  Sex: Female
  Weight: 69 kg

DRUGS (1)
  1. LYNPARZA [Suspect]
     Active Substance: OLAPARIB
     Indication: OVARIAN EPITHELIAL CANCER
     Dosage: 2 TABLETS TWO TIMES A DAY, ONCE IN THE MORNING, ONCE IN THE EVENING, SOMETIMES TOOK ONCE, SOMETIM...
     Route: 048
     Dates: start: 20181215, end: 201902

REACTIONS (10)
  - Seizure [Unknown]
  - Intentional product misuse [Unknown]
  - Ileus [Unknown]
  - Weight decreased [Unknown]
  - Metastases to lymph nodes [Unknown]
  - Anaemia [Unknown]
  - Vomiting [Unknown]
  - Metastases to central nervous system [Fatal]
  - Speech disorder [Unknown]
  - Malignant neoplasm progression [Fatal]

NARRATIVE: CASE EVENT DATE: 20181215
